FAERS Safety Report 12631922 (Version 2)
Quarter: 2016Q3

REPORT INFORMATION
  Report Type: Spontaneous
  Country: US (occurrence: US)
  Receive Date: 20160808
  Receipt Date: 20160808
  Transmission Date: 20161109
  Serious: No
  Sender: FDA-Public Use
  Company Number: US-BEH-2016061437

PATIENT
  Sex: Female
  Weight: 90 kg

DRUGS (36)
  1. HIZENTRA [Suspect]
     Active Substance: HUMAN IMMUNOGLOBULIN G
     Indication: IMMUNODEFICIENCY COMMON VARIABLE
     Route: 058
  2. WOMENS DAILY MULTIVITAMIN [Concomitant]
  3. ZOCOR [Concomitant]
     Active Substance: SIMVASTATIN
  4. PERCOCET [Concomitant]
     Active Substance: ACETAMINOPHEN\OXYCODONE HYDROCHLORIDE
  5. ALENDRONATE [Concomitant]
     Active Substance: ALENDRONATE SODIUM
  6. MIRALAX [Concomitant]
     Active Substance: POLYETHYLENE GLYCOL 3350
  7. EPIPEN [Concomitant]
     Active Substance: EPINEPHRINE
  8. GABAPENTIN. [Concomitant]
     Active Substance: GABAPENTIN
  9. CALCIUM [Concomitant]
     Active Substance: CALCIUM
  10. BENEFIBER [Concomitant]
     Active Substance: STARCH, WHEAT
  11. AMOXICILLIN. [Concomitant]
     Active Substance: AMOXICILLIN
  12. NIGHTTIME SLEEP AID [Concomitant]
  13. COLACE [Concomitant]
     Active Substance: DOCUSATE SODIUM
  14. MIRAPEX [Concomitant]
     Active Substance: PRAMIPEXOLE DIHYDROCHLORIDE
  15. XANAX [Concomitant]
     Active Substance: ALPRAZOLAM
  16. SINGULAIR [Concomitant]
     Active Substance: MONTELUKAST SODIUM
  17. EPIPEN [Concomitant]
     Active Substance: EPINEPHRINE
  18. VITAMIN D [Concomitant]
     Active Substance: CHOLECALCIFEROL
  19. LASIX [Concomitant]
     Active Substance: FUROSEMIDE
  20. AMBIEN [Concomitant]
     Active Substance: ZOLPIDEM TARTRATE
  21. VICODIN [Concomitant]
     Active Substance: ACETAMINOPHEN\HYDROCODONE BITARTRATE
  22. SYMBICORT [Concomitant]
     Active Substance: BUDESONIDE\FORMOTEROL FUMARATE DIHYDRATE
  23. HIZENTRA [Suspect]
     Active Substance: HUMAN IMMUNOGLOBULIN G
     Route: 058
  24. PREDNISONE. [Concomitant]
     Active Substance: PREDNISONE
  25. COUMADIN [Concomitant]
     Active Substance: WARFARIN SODIUM
  26. PHRENILIN [Concomitant]
     Active Substance: ACETAMINOPHEN\BUTALBITAL
  27. FEXOFENADINE [Concomitant]
     Active Substance: FEXOFENADINE\FEXOFENADINE HYDROCHLORIDE
  28. FLONASE [Concomitant]
     Active Substance: FLUTICASONE PROPIONATE
  29. HIZENTRA [Suspect]
     Active Substance: HUMAN IMMUNOGLOBULIN G
     Route: 058
  30. PROTONIX [Concomitant]
     Active Substance: PANTOPRAZOLE SODIUM
  31. CARDIZEM LA [Concomitant]
     Active Substance: DILTIAZEM HYDROCHLORIDE
  32. LISINOPRIL. [Concomitant]
     Active Substance: LISINOPRIL
  33. TUSSIONEX PENNKINETIC EXT [Concomitant]
  34. XOPENEX [Concomitant]
     Active Substance: LEVALBUTEROL HYDROCHLORIDE
  35. POTASSIUM [Concomitant]
     Active Substance: POTASSIUM
  36. VALTREX [Concomitant]
     Active Substance: VALACYCLOVIR HYDROCHLORIDE

REACTIONS (1)
  - Bronchitis [Unknown]
